FAERS Safety Report 4883005-6 (Version None)
Quarter: 2006Q1

REPORT INFORMATION
  Report Type: 
  Country: None (occurrence: None)
  Receive Date: 20060113
  Receipt Date: 20051222
  Transmission Date: 20060701
  Serious: Yes (Other)
  Sender: FDA-Public Use
  Company Number: JP200512003975

PATIENT
  Age: 78 Year
  Sex: Female

DRUGS (11)
  1. EVISTA [Suspect]
     Indication: OSTEOPOROSIS
     Dosage: 60 MG, DAILY (1/D), ORAL
     Route: 048
     Dates: start: 20051103, end: 20051221
  2. BLOPRESS (CANDESARTAN CILEXETIL) [Concomitant]
  3. DOXAZOSIN MESYLATE [Concomitant]
  4. FAMOTIDINE [Concomitant]
  5. NORVASC [Concomitant]
  6. FERROMIA (FERROUS CITRATE) [Concomitant]
  7. POLYCARBOPHIL CALCIUM (POLYCARBOPHIL CALCIUM) [Concomitant]
  8. ONE-ALPHA (ALFACALCIDOL) [Concomitant]
  9. METHYCOBAL (MECOBALAMIN) [Concomitant]
  10. SHAKUYAKUKANZOUTOU (HERBAL EXTRACTS NOS) [Concomitant]
  11. ACONINSUN (ACONITE) [Concomitant]

REACTIONS (2)
  - BLOOD POTASSIUM DECREASED [None]
  - RHABDOMYOLYSIS [None]
